FAERS Safety Report 4691624-5 (Version None)
Quarter: 2005Q2

REPORT INFORMATION
  Report Type: 
  Country: None (occurrence: None)
  Receive Date: 20050608
  Receipt Date: 20040422
  Transmission Date: 20051028
  Serious: Yes (Other)
  Sender: FDA-Public Use
  Company Number: 361428

PATIENT
  Age: 27 Year
  Sex: Female

DRUGS (1)
  1. ACCUTANE [Suspect]
     Dosage: 2 DOSE FORM DAILY ORAL
     Route: 048
     Dates: start: 19981220, end: 19990327

REACTIONS (1)
  - DEPRESSION [None]
